FAERS Safety Report 12539882 (Version 1)
Quarter: 2016Q3

REPORT INFORMATION
  Report Type: Spontaneous
  Country: US (occurrence: None)
  Receive Date: 20160708
  Receipt Date: 20160708
  Transmission Date: 20161109
  Serious: Yes (Other)
  Sender: FDA-Public Use
  Company Number: None

PATIENT
  Age: 21 Month
  Sex: Male
  Weight: 12.5 kg

DRUGS (1)
  1. OCTAGAM IMMUNE GLOBULIN (HUMAN) [Suspect]
     Active Substance: HUMAN IMMUNOGLOBULIN G
     Indication: KAWASAKI^S DISEASE
     Route: 041
     Dates: start: 20160701, end: 20160701

REACTIONS (5)
  - Infusion related reaction [None]
  - Product substitution issue [None]
  - Rash [None]
  - Urticaria [None]
  - Cheilitis [None]

NARRATIVE: CASE EVENT DATE: 20160701
